FAERS Safety Report 7978294-5 (Version None)
Quarter: 2011Q4

REPORT INFORMATION
  Report Type: 
  Country: None (occurrence: None)
  Receive Date: 20111214
  Receipt Date: 20111209
  Transmission Date: 20120403
  Serious: Yes (Other)
  Sender: FDA-Public Use
  Company Number: AT-PFIZER INC-2011130930

PATIENT
  Age: 29 Year
  Sex: Female

DRUGS (2)
  1. MEDROXYPROGESTERONE ACETATE [Suspect]
     Dosage: UNK
     Route: 058
     Dates: start: 20090101, end: 20100801
  2. LEVOTHYROXINE SODIUM [Concomitant]
     Dosage: UNK

REACTIONS (4)
  - BREAST CYST [None]
  - BREAST CANCER [None]
  - INJECTION SITE REACTION [None]
  - BREAST HAEMORRHAGE [None]
